FAERS Safety Report 8575603-3 (Version None)
Quarter: 2012Q3

REPORT INFORMATION
  Report Type: 
  Country: None (occurrence: None)
  Receive Date: 20120807
  Receipt Date: 20120731
  Transmission Date: 20120928
  Serious: Yes (Death, Hospitalization)
  Sender: FDA-Public Use
  Company Number: AT-ASTELLAS-2012EU003741

PATIENT
  Age: 72 Year
  Sex: Male

DRUGS (2)
  1. PROGRAF [Suspect]
     Dosage: UNK
     Route: 065
  2. TACROLIMUS [Suspect]
     Indication: RENAL TRANSPLANT
     Dosage: 3.5 MG, UNKNOWN/D
     Route: 065
     Dates: start: 20110305

REACTIONS (3)
  - MULTI-ORGAN FAILURE [None]
  - ENCEPHALITIS [None]
  - UROSEPSIS [None]
